FAERS Safety Report 21452976 (Version 1)
Quarter: 2022Q4

REPORT INFORMATION
  Report Type: Spontaneous
  Country: CA (occurrence: CA)
  Receive Date: 20221013
  Receipt Date: 20221013
  Transmission Date: 20230113
  Serious: Yes (Hospitalization)
  Sender: FDA-Public Use
  Company Number: CA-002147023-NVSC2022CA223896

PATIENT
  Age: 44 Year
  Sex: Female
  Weight: 70 kg

DRUGS (10)
  1. OMALIZUMAB [Suspect]
     Active Substance: OMALIZUMAB
     Indication: Asthma
     Dosage: 225 MG, Q2W
     Route: 058
  2. OMALIZUMAB [Suspect]
     Active Substance: OMALIZUMAB
     Dosage: 300 MG, Q2W
     Route: 058
  3. ALMOTRIPTAN MALATE [Suspect]
     Active Substance: ALMOTRIPTAN MALATE
     Indication: Migraine
     Dosage: UNK
     Route: 065
  4. ALMOTRIPTAN MALATE [Suspect]
     Active Substance: ALMOTRIPTAN MALATE
     Indication: Hypoaesthesia
  5. NARATRIPTAN HYDROCHLORIDE [Suspect]
     Active Substance: NARATRIPTAN HYDROCHLORIDE
     Indication: Migraine
     Dosage: UNK
     Route: 065
  6. ZOLMITRIPTAN [Suspect]
     Active Substance: ZOLMITRIPTAN
     Indication: Migraine
     Dosage: UNK
     Route: 065
  7. ZOLMITRIPTAN [Suspect]
     Active Substance: ZOLMITRIPTAN
     Indication: Hypoaesthesia
  8. FROVATRIPTAN SUCCINATE [Suspect]
     Active Substance: FROVATRIPTAN SUCCINATE
     Indication: Migraine
     Dosage: 1 DOSAGE FORM, BID
     Route: 065
  9. SUMATRIPTAN SUCCINATE [Suspect]
     Active Substance: SUMATRIPTAN SUCCINATE
     Indication: Migraine
     Dosage: UNK
     Route: 065
  10. SUMATRIPTAN SUCCINATE [Suspect]
     Active Substance: SUMATRIPTAN SUCCINATE
     Indication: Hypoaesthesia

REACTIONS (55)
  - Bronchial obstruction [Recovered/Resolved]
  - Bronchitis [Recovered/Resolved]
  - Burns third degree [Recovered/Resolved]
  - Chest discomfort [Recovered/Resolved]
  - Cough [Recovered/Resolved]
  - Drug intolerance [Recovered/Resolved]
  - Dust allergy [Recovered/Resolved]
  - Dyspnoea [Recovered/Resolved]
  - Ear discomfort [Recovered/Resolved]
  - Ear pain [Recovered/Resolved]
  - Feeling abnormal [Recovered/Resolved]
  - Flushing [Recovered/Resolved]
  - Hyperhidrosis [Recovered/Resolved]
  - Hypoaesthesia [Recovered/Resolved]
  - Injection site bruising [Recovered/Resolved]
  - Injection site swelling [Recovered/Resolved]
  - Insomnia [Recovered/Resolved]
  - Lung disorder [Recovered/Resolved]
  - Malaise [Recovered/Resolved]
  - Mobility decreased [Recovered/Resolved]
  - Nasal congestion [Recovered/Resolved]
  - Nasal discharge discolouration [Recovered/Resolved]
  - Nasal oedema [Recovered/Resolved]
  - Nasopharyngitis [Recovered/Resolved]
  - Nervousness [Recovered/Resolved]
  - Optic neuritis [Recovered/Resolved]
  - Pain [Recovered/Resolved]
  - Pneumonia [Recovered/Resolved]
  - Productive cough [Recovered/Resolved]
  - Pyrexia [Recovered/Resolved]
  - Respiratory tract infection [Recovered/Resolved]
  - Rhinorrhoea [Recovered/Resolved]
  - Seasonal allergy [Recovered/Resolved]
  - Sinusitis [Recovered/Resolved]
  - Sputum discoloured [Recovered/Resolved]
  - Temperature intolerance [Recovered/Resolved]
  - Tooth infection [Recovered/Resolved]
  - Weight decreased [Recovered/Resolved]
  - Weight increased [Recovered/Resolved]
  - Wheezing [Recovered/Resolved]
  - White blood cell count increased [Recovered/Resolved]
  - Asthenia [Recovered/Resolved]
  - Vision blurred [Recovered/Resolved]
  - Vomiting [Recovered/Resolved]
  - Diarrhoea [Recovered/Resolved]
  - Tinnitus [Recovered/Resolved]
  - Fatigue [Recovered/Resolved]
  - Headache [Recovered/Resolved]
  - Nausea [Recovered/Resolved]
  - Throat tightness [Recovered/Resolved]
  - Somnolence [Recovered/Resolved]
  - Migraine [Recovered/Resolved]
  - Asthma [Recovered/Resolved]
  - Therapy partial responder [Recovered/Resolved]
  - Incorrect dose administered [Unknown]
